FAERS Safety Report 19034407 (Version 1)
Quarter: 2021Q1

REPORT INFORMATION
  Report Type: Spontaneous
  Country: US (occurrence: US)
  Receive Date: 20210319
  Receipt Date: 20210319
  Transmission Date: 20210420
  Serious: No
  Sender: FDA-Public Use
  Company Number: US-IGSA-BIG0013629

PATIENT
  Age: 48 Year
  Sex: Female
  Weight: 66.8 kg

DRUGS (6)
  1. ACETAMINOPHEN. [Concomitant]
     Active Substance: ACETAMINOPHEN
     Indication: PREMEDICATION
     Dosage: 650 MILLIGRAM, TOTAL
     Route: 048
     Dates: start: 20210301, end: 20210301
  2. CORTICOSTEROID NOS [Concomitant]
     Active Substance: CORTICOSTEROID NOS
     Indication: POLYMYOSITIS
     Dosage: UNK
  3. GAMUNEX?C [Suspect]
     Active Substance: HUMAN IMMUNOGLOBULIN G
     Indication: POLYMYOSITIS
     Dosage: 65 GRAM, TOTAL
     Route: 042
     Dates: start: 20210301, end: 20210301
  4. GAMUNEX?C [Suspect]
     Active Substance: HUMAN IMMUNOGLOBULIN G
     Dosage: 130 GRAM, Q.4WK.
     Route: 042
     Dates: start: 20170201
  5. METHOTREXATE. [Concomitant]
     Active Substance: METHOTREXATE
     Indication: POLYMYOSITIS
     Dosage: UNK
     Route: 048
     Dates: start: 202010
  6. DIPHENHYDRAMINE. [Concomitant]
     Active Substance: DIPHENHYDRAMINE
     Indication: PREMEDICATION
     Dosage: 50 MILLIGRAM, TOTAL
     Route: 042
     Dates: start: 20210301, end: 20210301

REACTIONS (2)
  - Pruritus [Recovered/Resolved]
  - Urticaria [Recovered/Resolved]

NARRATIVE: CASE EVENT DATE: 20210301
